FAERS Safety Report 9851023 (Version 1)
Quarter: 2014Q1

REPORT INFORMATION
  Report Type: Spontaneous
  Country: US (occurrence: US)
  Receive Date: 20140128
  Receipt Date: 20140128
  Transmission Date: 20141002
  Serious: Yes (Other)
  Sender: FDA-Public Use
  Company Number: US-MYLANLABS-2014S1001068

PATIENT
  Age: 64 Year
  Sex: Female

DRUGS (2)
  1. PACLITAXEL [Suspect]
     Dosage: WEEKLY
     Route: 050
  2. CARBOPLATIN [Concomitant]
     Dosage: WEEKLY
     Route: 065

REACTIONS (1)
  - Toxic skin eruption [Recovered/Resolved]
